FAERS Safety Report 6443250-5 (Version None)
Quarter: 2009Q4

REPORT INFORMATION
  Report Type: 
  Country: None (occurrence: None)
  Receive Date: 20091113
  Receipt Date: 20091028
  Transmission Date: 20100525
  Serious: No
  Sender: FDA-Public Use
  Company Number: 2009110019

PATIENT
  Age: 39 Year
  Sex: Female

DRUGS (1)
  1. ONSOLIS [Suspect]
     Indication: PAIN
     Dosage: BU
     Route: 002

REACTIONS (2)
  - INTERCEPTED DRUG DISPENSING ERROR [None]
  - NO ADVERSE EVENT [None]
